FAERS Safety Report 8729644 (Version 2)
Quarter: 2015Q2

REPORT INFORMATION
  Report Type: Report from Study
  Country: US (occurrence: US)
  Receive Date: 20120817
  Receipt Date: 20150626
  Transmission Date: 20150821
  Serious: Yes (Other)
  Sender: FDA-Public Use
  Company Number: US-ROCHE-1101619

PATIENT
  Sex: Female

DRUGS (9)
  1. ACTIVASE [Suspect]
     Active Substance: ALTEPLASE
     Indication: MYOCARDIAL INFARCTION
     Route: 042
  2. ACTIVASE [Suspect]
     Active Substance: ALTEPLASE
     Dosage: 20 MG IV OVER 1 HR
     Route: 042
  3. BENADRYL [Concomitant]
     Active Substance: DIPHENHYDRAMINE HYDROCHLORIDE
     Route: 042
  4. HEPARIN [Concomitant]
     Active Substance: HEPARIN SODIUM
     Route: 040
  5. LIDOCAINE. [Concomitant]
     Active Substance: LIDOCAINE
     Route: 040
  6. ACTIVASE [Suspect]
     Active Substance: ALTEPLASE
     Route: 065
  7. ASPIRIN. [Concomitant]
     Active Substance: ASPIRIN
  8. ACTIVASE [Suspect]
     Active Substance: ALTEPLASE
     Dosage: 54 MG IV OVER 1 HR
     Route: 042
  9. SOLU-MEDROL [Concomitant]
     Active Substance: METHYLPREDNISOLONE SODIUM SUCCINATE
     Route: 042

REACTIONS (4)
  - Chest crushing [Unknown]
  - Dizziness [Unknown]
  - Arrhythmia [Unknown]
  - Nausea [Unknown]
